FAERS Safety Report 7251258-5 (Version None)
Quarter: 2011Q1

REPORT INFORMATION
  Report Type: 
  Country: None (occurrence: None)
  Receive Date: 20110128
  Receipt Date: 20110121
  Transmission Date: 20110831
  Serious: Yes (Hospitalization)
  Sender: FDA-Public Use
  Company Number: NL-GENZYME-CLOF-1001411

PATIENT
  Sex: Male
  Weight: 89 kg

DRUGS (1)
  1. EVOLTRA [Suspect]
     Indication: ACUTE LYMPHOCYTIC LEUKAEMIA
     Dosage: 20 MG/M2, UNK
     Route: 042

REACTIONS (1)
  - GRAFT VERSUS HOST DISEASE [None]
